FAERS Safety Report 8431843-5 (Version None)
Quarter: 2012Q2

REPORT INFORMATION
  Report Type: 
  Country: None (occurrence: None)
  Receive Date: 20120606
  Receipt Date: 20120525
  Transmission Date: 20120825
  Serious: Yes (Hospitalization, Other)
  Sender: FDA-Public Use
  Company Number: AUR-APL-2009-01353

PATIENT
  Age: 16 Year
  Sex: Male

DRUGS (14)
  1. RISPERIDONE [Suspect]
     Indication: PRODUCT USED FOR UNKNOWN INDICATION
     Dosage: (0.5 MG, 1 D), UNKNOWN     (5 MG), UNKNOWN
  2. ZIPRASIDONE HCL [Suspect]
     Indication: TIC
  3. TOPIRAMATE [Suspect]
     Indication: DECREASED APPETITE
     Dosage: 100 MG (50 MG, 1 IN 12 HR),    10 MG (50 MG, 2 IN 1 D),,
  4. HALOPERIDOL [Suspect]
     Indication: PRODUCT USED FOR UNKNOWN INDICATION
  5. LEVETIRACETAM [Suspect]
     Indication: PRODUCT USED FOR UNKNOWN INDICATION
  6. FLUOXETINE [Suspect]
     Indication: ANXIETY
     Dosage: (30 MG, 1 D), ORAL
     Route: 048
  7. PIMOZIDE (PIMOZIDE) [Suspect]
     Indication: PRODUCT USED FOR UNKNOWN INDICATION
  8. TETRABENAZINE (TETRABENAZINE) [Suspect]
     Indication: PRODUCT USED FOR UNKNOWN INDICATION
  9. ARIPIPRAZOLE [Suspect]
     Indication: PRODUCT USED FOR UNKNOWN INDICATION
     Dosage: (10 MG),
  10. MIDAZOLAM HCL [Suspect]
     Indication: TIC
     Route: 042
  11. FLUPHENAZINE [Suspect]
     Indication: PRODUCT USED FOR UNKNOWN INDICATION
  12. OXCARBAZEPINE [Suspect]
     Indication: PRODUCT USED FOR UNKNOWN INDICATION
  13. ZOLPIDEM [Suspect]
     Indication: PRODUCT USED FOR UNKNOWN INDICATION
     Dosage: 20 MG (10 MG, 1 IN 12 HR),
  14. BENZTROPINE MESYLATE [Suspect]
     Indication: TOURETTE'S DISORDER
     Dosage: 1 MG (0.5 MG, 2 IN 1 D), UNKNOWN

REACTIONS (14)
  - DEPRESSION [None]
  - SUICIDAL IDEATION [None]
  - LETHARGY [None]
  - ANXIETY [None]
  - CONDITION AGGRAVATED [None]
  - GALACTORRHOEA [None]
  - LOSS OF CONSCIOUSNESS [None]
  - MUSCULOSKELETAL STIFFNESS [None]
  - DRUG INTERACTION [None]
  - WEIGHT INCREASED [None]
  - BLOOD PROLACTIN INCREASED [None]
  - ELECTROCARDIOGRAM QT PROLONGED [None]
  - MOOD ALTERED [None]
  - TIC [None]
